FAERS Safety Report 10739458 (Version 3)
Quarter: 2016Q3

REPORT INFORMATION
  Report Type: Spontaneous
  Country: JP (occurrence: JP)
  Receive Date: 20150126
  Receipt Date: 20160826
  Transmission Date: 20161109
  Serious: Yes (Death, Other)
  Sender: FDA-Public Use
  Company Number: JP-GLAXOSMITHKLINE-B1027946A

PATIENT
  Age: 81 Year
  Sex: Male
  Weight: 41 kg

DRUGS (6)
  1. NITRAZEPAM [Concomitant]
     Active Substance: NITRAZEPAM
     Indication: INSOMNIA
     Dosage: 5 MG, QD
     Dates: start: 20140729, end: 20140903
  2. LAMOTRIGINE. [Suspect]
     Active Substance: LAMOTRIGINE
     Dosage: 25 MG, BID
     Route: 048
     Dates: start: 20140724, end: 20140814
  3. TELGIN G [Concomitant]
     Indication: RASH
     Dosage: 1 MG, BID
     Dates: start: 20140713, end: 20140820
  4. LANSOPRAZOLE. [Concomitant]
     Active Substance: LANSOPRAZOLE
     Dosage: 15 MG, QD
     Dates: start: 20140726, end: 20140820
  5. RISPERDAL [Concomitant]
     Active Substance: RISPERIDONE
     Indication: DELIRIUM
     Dosage: 1 MG, QD
     Dates: start: 20140715, end: 20140730
  6. LAMOTRIGINE. [Suspect]
     Active Substance: LAMOTRIGINE
     Indication: EPILEPSY
     Dosage: 25 MG, QD
     Route: 048
     Dates: start: 20140715, end: 20140723

REACTIONS (13)
  - Skin erosion [Fatal]
  - Lip erosion [Fatal]
  - Stevens-Johnson syndrome [Fatal]
  - Skin erosion [Fatal]
  - Pyrexia [Unknown]
  - Rash [Fatal]
  - Oral mucosa erosion [Fatal]
  - Scrotal ulcer [Fatal]
  - Escherichia sepsis [Unknown]
  - Toxic epidermal necrolysis [Fatal]
  - Erythema multiforme [Fatal]
  - Stomatitis [Fatal]
  - Skin exfoliation [Fatal]

NARRATIVE: CASE EVENT DATE: 2014
